FAERS Safety Report 8113110-2 (Version None)
Quarter: 2012Q1

REPORT INFORMATION
  Report Type: 
  Country: None (occurrence: None)
  Receive Date: 20120203
  Receipt Date: 20120126
  Transmission Date: 20120608
  Serious: Yes (Hospitalization)
  Sender: FDA-Public Use
  Company Number: US-AMGEN-USASP2012005512

PATIENT
  Age: 67 Year
  Sex: Male

DRUGS (1)
  1. ENBREL [Suspect]
     Indication: RHEUMATOID ARTHRITIS
     Dosage: 50 MG, QWK
     Dates: start: 20071101

REACTIONS (16)
  - RESPIRATION ABNORMAL [None]
  - ASTHENIA [None]
  - PULMONARY EMBOLISM [None]
  - BLOOD TEST ABNORMAL [None]
  - FALL [None]
  - PALLOR [None]
  - OEDEMA PERIPHERAL [None]
  - PROSTATOMEGALY [None]
  - RIB FRACTURE [None]
  - MALAISE [None]
  - DECREASED APPETITE [None]
  - DYSPNOEA [None]
  - BLOOD DISORDER [None]
  - HIP ARTHROPLASTY [None]
  - PAIN IN EXTREMITY [None]
  - BLOOD PRESSURE INCREASED [None]
